FAERS Safety Report 25412650 (Version 3)
Quarter: 2025Q4

REPORT INFORMATION
  Report Type: Spontaneous
  Country: US (occurrence: US)
  Receive Date: 20250609
  Receipt Date: 20251029
  Transmission Date: 20260117
  Serious: Yes (Other)
  Sender: NOVO NORDISK
  Company Number: US-NOVOPROD-1449673

PATIENT
  Age: 61 Year
  Sex: Female

DRUGS (2)
  1. SEMAGLUTIDE [Suspect]
     Active Substance: SEMAGLUTIDE
     Indication: Weight control
     Dosage: 1.7 MG
     Dates: start: 202501
  2. WEGOVY [Suspect]
     Active Substance: SEMAGLUTIDE
     Indication: Weight control
     Dosage: 1.7 MG

REACTIONS (4)
  - High frequency ablation [Unknown]
  - Spinal operation [Unknown]
  - Mast cell activation syndrome [Unknown]
  - Dizziness [Unknown]

NARRATIVE: CASE EVENT DATE: 20250101
